FAERS Safety Report 10551555 (Version 1)
Quarter: 2014Q4

REPORT INFORMATION
  Report Type: Spontaneous
  Country: US (occurrence: None)
  Receive Date: 20141022
  Receipt Date: 20141022
  Transmission Date: 20150529
  Serious: Yes (Hospitalization)
  Sender: FDA-Public Use
  Company Number: 2014-11575

PATIENT
  Sex: Female

DRUGS (4)
  1. ZARAH [Suspect]
     Active Substance: DROSPIRENONE\ETHINYL ESTRADIOL
     Indication: ORAL CONTRACEPTION
     Dosage: ^AS PRESCRIBED AND IN A FORESEEABLE MANNER:, ORAL
     Route: 048
  2. OCELLA [Suspect]
     Active Substance: DROSPIRENONE\ETHINYL ESTRADIOL
     Indication: ORAL CONTRACEPTION
     Dosage: ^AS PRESCRIBED AND IN A FORESEEABLE MANNER:, ORAL
     Route: 048
  3. YASMIN [Suspect]
     Active Substance: DROSPIRENONE\ETHINYL ESTRADIOL
     Indication: ORAL CONTRACEPTION
     Dosage: ^AS PRESCRIBED AND IN A FORESEEABLE MANNER^
     Route: 048
  4. YAZ [Suspect]
     Active Substance: DROSPIRENONE\ETHINYL ESTRADIOL
     Indication: ORAL CONTRACEPTION
     Dosage: ^AS PRESCRIBED AND IN A FORESEEABLE MANNER:, ORAL
     Route: 048

REACTIONS (1)
  - Portal vein thrombosis [None]
